FAERS Safety Report 9978136 (Version 3)
Quarter: 2014Q1

REPORT INFORMATION
  Report Type: Spontaneous
  Country: US (occurrence: US)
  Receive Date: 20140306
  Receipt Date: 20140320
  Transmission Date: 20141002
  Serious: No
  Sender: FDA-Public Use
  Company Number: US-PFIZER INC-2014062179

PATIENT
  Age: 63 Year
  Sex: Female
  Weight: 68.03 kg

DRUGS (3)
  1. GABAPENTIN [Suspect]
     Indication: ARNOLD-CHIARI MALFORMATION
     Dosage: UNK
  2. GABAPENTIN [Suspect]
     Indication: NERVE INJURY
  3. NORCO [Concomitant]
     Indication: NEURALGIA
     Dosage: UNK

REACTIONS (13)
  - Drug ineffective [Unknown]
  - Pain [Unknown]
  - Gait disturbance [Unknown]
  - Pain in extremity [Unknown]
  - Fall [Unknown]
  - Neuralgia [Unknown]
  - Thyroid disorder [Unknown]
  - Blood cholesterol increased [Unknown]
  - Glucose tolerance impaired [Unknown]
  - Dysphagia [Unknown]
  - Intentional drug misuse [Unknown]
  - Abdominal pain upper [Unknown]
  - Product size issue [Unknown]
